FAERS Safety Report 5614416-9 (Version None)
Quarter: 2008Q1

REPORT INFORMATION
  Report Type: 
  Country: None (occurrence: None)
  Receive Date: 20080130
  Receipt Date: 20080115
  Transmission Date: 20080703
  Serious: Yes (Death, Other)
  Sender: FDA-Public Use
  Company Number: 100#08#2008-00358

PATIENT
  Age: 30 Year
  Sex: Male

DRUGS (3)
  1. CITALOPRAM HYDROBROMIDE [Suspect]
     Indication: DRUG USE FOR UNKNOWN INDICATION
  2. DINITROPHENOL (DINITROPHENOL) [Suspect]
     Indication: DRUG USE FOR UNKNOWN INDICATION
  3. DINITROPHENOL (DINITROPHENOL) [Suspect]
     Indication: DRUG USE FOR UNKNOWN INDICATION

REACTIONS (5)
  - DRUG LEVEL BELOW THERAPEUTIC [None]
  - DRUG TOXICITY [None]
  - OVERDOSE [None]
  - PULMONARY OEDEMA [None]
  - VISCERAL CONGESTION [None]
